FAERS Safety Report 6523473-7 (Version None)
Quarter: 2009Q4

REPORT INFORMATION
  Report Type: 
  Country: None (occurrence: None)
  Receive Date: 20091231
  Receipt Date: 20091218
  Transmission Date: 20100525
  Serious: Yes (Death, Congenital Anomaly)
  Sender: FDA-Public Use
  Company Number: PHHY2009US57697

PATIENT

DRUGS (1)
  1. TEGRETOL [Suspect]
     Dosage: MATERNAL DOSE UNKNOWN
     Route: 064

REACTIONS (7)
  - ABORTION INDUCED [None]
  - BRAIN MALFORMATION [None]
  - DRUG EXPOSURE DURING PREGNANCY [None]
  - FOETAL GROWTH RETARDATION [None]
  - HEART DISEASE CONGENITAL [None]
  - PULMONARY MALFORMATION [None]
  - SYNDACTYLY [None]
